FAERS Safety Report 8974282 (Version 2)
Quarter: 2012Q4

REPORT INFORMATION
  Report Type: Spontaneous
  Country: DE (occurrence: None)
  Receive Date: 20121214
  Receipt Date: 20121217
  Transmission Date: 20130627
  Serious: Yes (Death)
  Sender: FDA-Public Use
  Company Number: 2012AT000763

PATIENT
  Age: 78 Year
  Sex: Male

DRUGS (10)
  1. ALPROSTADIL [Suspect]
     Indication: PERIPHERAL ARTERIAL OCCLUSIVE DISEASE
     Dosage: 20 UG;  8/10/2012 - UNKNOWN
     Dates: start: 20120810
  2. ALPROSTADIL [Suspect]
     Indication: PERIPHERAL ARTERIAL OCCLUSIVE DISEASE
     Dosage: 80 UG;  UNKNOWN - 08/19/2012
     Dates: end: 20120819
  3. ENALAPRIL MALEATE [Suspect]
  4. SIMVASTATIN [Concomitant]
  5. ASS [Concomitant]
  6. BELOC-ZOK [Concomitant]
  7. TORASEMIDE [Concomitant]
  8. PANTOPRAZOLE SODIUM [Concomitant]
  9. SACCHAROMYCES BOULARDII [Concomitant]
  10. AMINOSALICYLIC ACID [Concomitant]

REACTIONS (1)
  - Myocardial infarction [None]
